FAERS Safety Report 4350656-7 (Version None)
Quarter: 2004Q2

REPORT INFORMATION
  Report Type: 
  Country: None (occurrence: None)
  Receive Date: 20040428
  Receipt Date: 20040324
  Transmission Date: 20050107
  Serious: Yes (Hospitalization)
  Sender: FDA-Public Use
  Company Number: 6008120

PATIENT
  Age: 78 Year
  Sex: Male

DRUGS (7)
  1. BISOPROLOL FUMARATE [Suspect]
     Route: 048
     Dates: start: 20040225
  2. FERROUS SULFATE TAB [Concomitant]
  3. AMLODIPINE BESYLATE [Concomitant]
  4. OMEPRAZOLE [Concomitant]
  5. POTASSIUM CHLORIDE [Concomitant]
  6. SPECIAFOLIDINE(FOLIC ACID) [Concomitant]
  7. RIVOTRIL [Concomitant]

REACTIONS (7)
  - ANTINUCLEAR ANTIBODY POSITIVE [None]
  - C-REACTIVE PROTEIN INCREASED [None]
  - CHILLS [None]
  - COUGH [None]
  - HAEMOTHORAX [None]
  - PLEURAL EFFUSION [None]
  - PYREXIA [None]
